FAERS Safety Report 5964217-7 (Version None)
Quarter: 2008Q4

REPORT INFORMATION
  Report Type: 
  Country: None (occurrence: None)
  Receive Date: 20081124
  Receipt Date: 20070613
  Transmission Date: 20090506
  Serious: Yes (Other)
  Sender: FDA-Public Use
  Company Number: JP-PFIZER INC-2008037480

PATIENT
  Age: 77 Year
  Sex: Female

DRUGS (15)
  1. MIGLITOL TABLET [Suspect]
     Indication: DIABETES MELLITUS
     Dosage: DAILY DOSE:150MG
     Route: 048
     Dates: start: 20070327, end: 20070425
  2. MITIGLINIDE [Concomitant]
     Indication: DIABETES MELLITUS
     Route: 048
  3. HALCION [Concomitant]
     Route: 048
  4. ZYRTEC [Concomitant]
     Route: 048
  5. MEVALOTIN [Concomitant]
     Route: 048
  6. WARFARIN SODIUM [Concomitant]
     Route: 048
  7. URINORM [Concomitant]
     Route: 048
  8. BEZAFIBRATE [Concomitant]
     Indication: HYPERLIPIDAEMIA
     Route: 048
  9. NIKORANMART [Concomitant]
     Route: 048
  10. KALGUT [Concomitant]
     Route: 048
  11. ISOSORBIDE DINITRATE [Concomitant]
     Route: 048
  12. AMARYL [Concomitant]
     Indication: DIABETES MELLITUS
     Route: 048
  13. NORVASC [Concomitant]
     Route: 048
  14. ALFACALCIDOL [Concomitant]
     Route: 048
  15. DIGOXIN [Concomitant]
     Route: 048

REACTIONS (1)
  - HEPATIC FUNCTION ABNORMAL [None]
